FAERS Safety Report 15314820 (Version 2)
Quarter: 2018Q3

REPORT INFORMATION
  Report Type: Spontaneous
  Country: US (occurrence: US)
  Receive Date: 20180824
  Receipt Date: 20180831
  Transmission Date: 20181010
  Serious: Yes (Other)
  Sender: FDA-Public Use
  Company Number: US-FERRINGPH-2018FE04549

PATIENT

DRUGS (1)
  1. STIMATE [Suspect]
     Active Substance: DESMOPRESSIN ACETATE
     Indication: VON WILLEBRAND^S DISEASE
     Dosage: ,1 DF, DAILY, NO MORE THAN 3 DAYS IN ROW AS NEEDED
     Route: 045
     Dates: start: 20130307

REACTIONS (1)
  - Peripheral swelling [Recovered/Resolved]
